FAERS Safety Report 23647794 (Version 8)
Quarter: 2025Q1

REPORT INFORMATION
  Report Type: Spontaneous
  Country: DE (occurrence: DE)
  Receive Date: 20240319
  Receipt Date: 20250325
  Transmission Date: 20250409
  Serious: Yes (Life-Threatening)
  Sender: BAYER HEALTHCARE PHARMACEUTICALS INC.
  Company Number: DE-BAYER-2024A036416

PATIENT
  Age: 73 Year
  Sex: Male
  Weight: 115 kg

DRUGS (9)
  1. NUBEQA [Suspect]
     Active Substance: DAROLUTAMIDE
     Indication: Hormone-dependent prostate cancer
     Dosage: 600 MG, QD
     Route: 048
     Dates: start: 20231114, end: 20231130
  2. NUBEQA [Suspect]
     Active Substance: DAROLUTAMIDE
     Indication: Metastasis
     Dosage: 300 MG, QD
     Route: 048
  3. NUBEQA [Suspect]
     Active Substance: DAROLUTAMIDE
     Indication: Hormone-dependent prostate cancer
     Route: 048
  4. DOCETAXEL [Suspect]
     Active Substance: DOCETAXEL
     Indication: Hormone-dependent prostate cancer
     Dosage: 120.5 MG EVERY TWO WEEKS (Q14D
     Route: 042
     Dates: start: 20231120, end: 20231130
  5. DOCETAXEL [Suspect]
     Active Substance: DOCETAXEL
     Indication: Metastasis
     Dosage: 120.5 MG, Q2WK (120.5 MG EVERY TWO WEEKS (Q14D)
     Route: 042
     Dates: start: 20231211, end: 20231211
  6. DOCETAXEL [Suspect]
     Active Substance: DOCETAXEL
     Indication: Hormone-dependent prostate cancer
     Dosage: 50 MG, Q2WK
     Route: 042
  7. LUPRON [Suspect]
     Active Substance: LEUPROLIDE ACETATE
     Indication: Hormone-dependent prostate cancer
     Dosage: 5 MG, Q3MON
     Route: 058
     Dates: start: 20230831, end: 20230831
  8. LUPRON [Suspect]
     Active Substance: LEUPROLIDE ACETATE
     Indication: Metastasis
     Dosage: 5 MG, Q3MON
     Route: 058
     Dates: start: 20231130, end: 20231130
  9. LUPRON [Suspect]
     Active Substance: LEUPROLIDE ACETATE
     Indication: Androgen therapy
     Route: 058

REACTIONS (1)
  - Neutrophil count decreased [Recovered/Resolved]

NARRATIVE: CASE EVENT DATE: 20231130
